FAERS Safety Report 8765157 (Version 1)
Quarter: 2012Q4

REPORT INFORMATION
  Report Type: 
  Country: JP (occurrence: JP)
  Receive Date: 20120903
  Receipt Date: 20120903
  Transmission Date: 20130627
  Serious: Yes (Hospitalization)
  Sender: FDA-Public Use
  Company Number: JP-009507513-1206USA00654

PATIENT

DRUGS (7)
  1. GLACTIV [Suspect]
     Indication: TYPE 2 DIABETES MELLITUS
     Dosage: 25 mg, qd
     Route: 048
     Dates: start: 20110428
  2. TAKEPRON [Concomitant]
  3. SELBEX [Concomitant]
  4. MAGNESIUM OXIDE [Concomitant]
  5. FOSAMAC TABLETS 35MG [Concomitant]
     Route: 048
  6. NEUROTROPIN [Concomitant]
  7. NEO VITACAIN [Concomitant]

REACTIONS (1)
  - Lumbar vertebral fracture [Recovered/Resolved]
